FAERS Safety Report 16551777 (Version 1)
Quarter: 2019Q3

REPORT INFORMATION
  Report Type: Spontaneous
  Country: CA (occurrence: CA)
  Receive Date: 20190710
  Receipt Date: 20190710
  Transmission Date: 20191004
  Serious: Yes (Other)
  Sender: FDA-Public Use
  Company Number: CA-PFIZER INC-2019290624

PATIENT
  Age: 30 Year
  Sex: Female

DRUGS (3)
  1. MIRENA [Suspect]
     Active Substance: LEVONORGESTREL
     Dosage: 20 UG, DAILY (EVERY 1 DAY(S))
     Route: 015
  2. LEVONORGESTREL. [Suspect]
     Active Substance: LEVONORGESTREL
     Dosage: UNK
  3. VENLAFAXINE HCL [Suspect]
     Active Substance: VENLAFAXINE HYDROCHLORIDE
     Dosage: UNK

REACTIONS (4)
  - Depression [Unknown]
  - Lactation disorder [Unknown]
  - Drug ineffective [Unknown]
  - Pregnancy with contraceptive device [Unknown]
